FAERS Safety Report 8426142-1 (Version None)
Quarter: 2012Q2

REPORT INFORMATION
  Report Type: 
  Country: None (occurrence: None)
  Receive Date: 20120611
  Receipt Date: 20120606
  Transmission Date: 20120825
  Serious: Yes (Disabling, Other)
  Sender: FDA-Public Use
  Company Number: US-BRACCO-005149

PATIENT
  Sex: Male
  Weight: 70 kg

DRUGS (33)
  1. PROHANCE [Suspect]
     Indication: RENAL MASS
     Route: 065
     Dates: start: 20030703, end: 20030703
  2. PLAVIX [Concomitant]
  3. OMNISCAN [Suspect]
     Indication: LIVER DISORDER
     Route: 065
     Dates: start: 20040713, end: 20040713
  4. OMNISCAN [Suspect]
     Indication: NECK PAIN
     Route: 065
     Dates: start: 20040713, end: 20040713
  5. IRON [Concomitant]
  6. OMNISCAN [Suspect]
     Indication: NUCLEAR MAGNETIC RESONANCE IMAGING ABDOMINAL
     Route: 065
     Dates: start: 20040713, end: 20040713
  7. CLONIDINE [Concomitant]
  8. PROHANCE [Suspect]
     Indication: RENAL SCAN
     Route: 065
     Dates: start: 20030703, end: 20030703
  9. OMNISCAN [Suspect]
     Indication: OSTEOMYELITIS
     Route: 065
     Dates: start: 20040713, end: 20040713
  10. CONTRAST MEDIA [Suspect]
     Indication: DECUBITUS ULCER
     Dates: start: 20050414, end: 20050414
  11. CALCITRIOL [Concomitant]
  12. PROAMATINE [Concomitant]
  13. EPOGEN [Concomitant]
  14. RENVELA [Concomitant]
  15. MAGNEVIST [Suspect]
  16. PROHANCE [Suspect]
     Indication: NUCLEAR MAGNETIC RESONANCE IMAGING
     Route: 065
     Dates: start: 20050414, end: 20050414
  17. CONTRAST MEDIA [Suspect]
     Indication: NUCLEAR MAGNETIC RESONANCE IMAGING
     Dates: start: 20050414, end: 20050414
  18. COZAAR [Concomitant]
  19. CALCIUM CARBONATE [Concomitant]
  20. OMNISCAN [Suspect]
     Indication: NUCLEAR MAGNETIC RESONANCE IMAGING
     Route: 065
     Dates: start: 20040713, end: 20040713
  21. MULTIHANCE [Suspect]
     Indication: DIAGNOSTIC PROCEDURE
     Route: 065
  22. METOPROLOL TARTRATE [Concomitant]
  23. SENSIPAR [Concomitant]
  24. RENA-VITE [Concomitant]
  25. PHOSLO [Concomitant]
  26. HECTOROL [Concomitant]
  27. RENAGEL [Concomitant]
  28. AMLODIPINE [Concomitant]
  29. OPTIMARK [Suspect]
  30. OMNISCAN [Suspect]
     Indication: NUCLEAR MAGNETIC RESONANCE IMAGING BRAIN
     Route: 065
     Dates: start: 20041015, end: 20041015
  31. FOSRENOL [Concomitant]
  32. LISINOPRIL [Concomitant]
  33. FOLTX [Concomitant]

REACTIONS (1)
  - NEPHROGENIC SYSTEMIC FIBROSIS [None]
